FAERS Safety Report 23608054 (Version 2)
Quarter: 2024Q3

REPORT INFORMATION
  Report Type: Spontaneous
  Country: GB (occurrence: GB)
  Receive Date: 20240307
  Receipt Date: 20240820
  Transmission Date: 20241016
  Serious: Yes (Life-Threatening)
  Sender: BAUSCH AND LOMB
  Company Number: GB-PFIZER INC-PV202400026680

PATIENT
  Age: 6 Decade
  Sex: Male

DRUGS (1)
  1. DEXAMETHASONE [Suspect]
     Active Substance: DEXAMETHASONE
     Indication: Plasma cell myeloma
     Route: 065

REACTIONS (1)
  - Therapy non-responder [Unknown]
